FAERS Safety Report 7730514-8 (Version None)
Quarter: 2011Q3

REPORT INFORMATION
  Report Type: 
  Country: None (occurrence: None)
  Receive Date: 20110906
  Receipt Date: 20110901
  Transmission Date: 20111222
  Serious: Yes (Death, Hospitalization)
  Sender: FDA-Public Use
  Company Number: ES-ASTRAZENECA-2011SE52758

PATIENT
  Age: 70 Year
  Sex: Female

DRUGS (4)
  1. AMIKACIN [Suspect]
     Indication: ABDOMINAL SEPSIS
     Route: 042
     Dates: start: 20110317, end: 20110330
  2. MEROPENEM [Suspect]
     Indication: ABDOMINAL SEPSIS
     Route: 042
     Dates: start: 20110706, end: 20110713
  3. CUBICIN [Suspect]
     Indication: ABDOMINAL SEPSIS
     Route: 042
     Dates: start: 20110703, end: 20110713
  4. AMIKACIN [Suspect]
     Route: 042
     Dates: start: 20110706, end: 20110713

REACTIONS (1)
  - THROMBOCYTOPENIA [None]
